FAERS Safety Report 9433147 (Version 3)
Quarter: 2013Q4

REPORT INFORMATION
  Report Type: Spontaneous
  Country: US (occurrence: US)
  Receive Date: 20130731
  Receipt Date: 20131004
  Transmission Date: 20140711
  Serious: Yes (Death, Hospitalization, Other)
  Sender: FDA-Public Use
  Company Number: US-BAXTER-2013BAX029571

PATIENT
  Age: 64 Year
  Sex: Male

DRUGS (4)
  1. DIANEAL LOW CALCIUM [Suspect]
     Indication: PERITONEAL DIALYSIS
     Route: 033
     Dates: start: 2011, end: 20130923
  2. DIANEAL LOW CALCIUM [Suspect]
     Indication: RENAL FAILURE CHRONIC
  3. EXTRANEAL [Suspect]
     Indication: PERITONEAL DIALYSIS
     Route: 033
     Dates: start: 2011, end: 20130923
  4. EXTRANEAL [Suspect]
     Indication: RENAL FAILURE CHRONIC

REACTIONS (4)
  - Pulmonary haemorrhage [Fatal]
  - Myocardial infarction [Unknown]
  - Lobar pneumonia [Unknown]
  - Cardiac arrest [Unknown]
